FAERS Safety Report 24974955 (Version 1)
Quarter: 2025Q1

REPORT INFORMATION
  Report Type: Spontaneous
  Country: JP (occurrence: JP)
  Receive Date: 20250217
  Receipt Date: 20250217
  Transmission Date: 20250408
  Serious: No
  Sender: ROCHE
  Company Number: JP-CHUGAI-2025000819

PATIENT
  Age: 8 Decade
  Sex: Female
  Weight: 32 kg

DRUGS (1)
  1. ACTEMRA [Suspect]
     Active Substance: TOCILIZUMAB
     Indication: COVID-19 pneumonia
     Route: 040

REACTIONS (2)
  - Overdose [Unknown]
  - No adverse event [Unknown]
